FAERS Safety Report 22080982 (Version 1)
Quarter: 2023Q1

REPORT INFORMATION
  Report Type: Spontaneous
  Country: BE (occurrence: BE)
  Receive Date: 20230309
  Receipt Date: 20230309
  Transmission Date: 20230417
  Serious: Yes (Life-Threatening)
  Sender: FDA-Public Use
  Company Number: BE-THINTERNSV-TPB20235370

PATIENT
  Age: 69 Year
  Sex: Male

DRUGS (5)
  1. NOREPINEPHRINE BITARTRATE [Suspect]
     Active Substance: NOREPINEPHRINE BITARTRATE
     Indication: Cardiogenic shock
     Dosage: UNK
     Route: 042
  2. MOLSIDOMINE [Suspect]
     Active Substance: MOLSIDOMINE
     Indication: Cardiogenic shock
     Dosage: UNK
     Route: 042
  3. EPINEPHRINE [Suspect]
     Active Substance: EPINEPHRINE
     Indication: Cardiogenic shock
     Dosage: UNK
     Route: 042
  4. MILRINONE [Suspect]
     Active Substance: MILRINONE
     Indication: Cardiogenic shock
     Dosage: UNK
     Route: 042
  5. LABETALOL [Suspect]
     Active Substance: LABETALOL\LABETALOL HYDROCHLORIDE
     Indication: Cardiogenic shock
     Dosage: UNK
     Route: 042

REACTIONS (1)
  - Drug ineffective [Unknown]
